FAERS Safety Report 17040841 (Version 2)
Quarter: 2019Q4

REPORT INFORMATION
  Report Type: Spontaneous
  Country: US (occurrence: US)
  Receive Date: 20191118
  Receipt Date: 20191125
  Transmission Date: 20200122
  Serious: No
  Sender: FDA-Public Use
  Company Number: US-009507513-1911USA006177

PATIENT
  Sex: Female
  Weight: 92.97 kg

DRUGS (2)
  1. NEXPLANON [Suspect]
     Active Substance: ETONOGESTREL
     Indication: CONTRACEPTION
     Dosage: UNK
     Dates: end: 20191105
  2. NEXPLANON [Suspect]
     Active Substance: ETONOGESTREL
     Dosage: UNK
     Route: 059
     Dates: start: 20191105, end: 20191114

REACTIONS (5)
  - Axillary pain [Unknown]
  - Implant site pain [Unknown]
  - Application site discomfort [Unknown]
  - Complication associated with device [Unknown]
  - Implant site reaction [Unknown]

NARRATIVE: CASE EVENT DATE: 201911
